FAERS Safety Report 6066869-2 (Version None)
Quarter: 2009Q1

REPORT INFORMATION
  Report Type: 
  Country: None (occurrence: None)
  Receive Date: 20090205
  Receipt Date: 20080729
  Transmission Date: 20090719
  Serious: No
  Sender: FDA-Public Use
  Company Number: US-ABBOTT-08P-163-0466584-00

PATIENT
  Sex: Female
  Weight: 56.75 kg

DRUGS (2)
  1. VICODIN [Suspect]
     Indication: CROHN'S DISEASE
     Route: 048
     Dates: start: 20050101, end: 20050101
  2. VICODIN [Suspect]
     Indication: PAIN MANAGEMENT

REACTIONS (2)
  - OROPHARYNGEAL PAIN [None]
  - VOMITING [None]
